FAERS Safety Report 17038280 (Version 1)
Quarter: 2019Q4

REPORT INFORMATION
  Report Type: Report from Study
  Country: US (occurrence: US)
  Receive Date: 20191115
  Receipt Date: 20191115
  Transmission Date: 20200122
  Serious: Yes (Other)
  Sender: FDA-Public Use
  Company Number: US-JNJFOC-20191113337

PATIENT
  Sex: Female

DRUGS (2)
  1. MAGNESIUM OXIDE. [Concomitant]
     Active Substance: MAGNESIUM OXIDE
  2. IMBRUVICA [Suspect]
     Active Substance: IBRUTINIB
     Indication: LYMPHOCYTIC LEUKAEMIA
     Dosage: 420 MG, QD
     Route: 048
     Dates: start: 20190404

REACTIONS (5)
  - Insomnia [Unknown]
  - Arrhythmia [Unknown]
  - Muscle spasms [Unknown]
  - Neuropathy peripheral [Unknown]
  - Hernia repair [Unknown]
